FAERS Safety Report 9252213 (Version 1)
Quarter: 2013Q2

REPORT INFORMATION
  Report Type: Spontaneous
  Country: CO (occurrence: CO)
  Receive Date: 20130424
  Receipt Date: 20130424
  Transmission Date: 20140414
  Serious: Yes (Other)
  Sender: FDA-Public Use
  Company Number: CO-COVIDIEN/TYCO HEALTHCARE/MALLINCKRODT-T201301750

PATIENT
  Sex: Male

DRUGS (1)
  1. HYDROCODONE/ACETAMINOPHEN [Suspect]
     Indication: PAIN
     Dosage: 5/500 MG, TWO TABLETS PER DAY
     Route: 048
     Dates: start: 20130214

REACTIONS (1)
  - Melaena [Not Recovered/Not Resolved]
